FAERS Safety Report 17044416 (Version 1)
Quarter: 2019Q4

REPORT INFORMATION
  Report Type: Spontaneous
  Country: GB (occurrence: GB)
  Receive Date: 20191117
  Receipt Date: 20191117
  Transmission Date: 20200122
  Serious: Yes (Disabling)
  Sender: FDA-Public Use
  Company Number: None

PATIENT
  Age: 52 Year
  Sex: Female
  Weight: 72 kg

DRUGS (1)
  1. DOTAREM [Suspect]
     Active Substance: GADOTERATE MEGLUMINE

REACTIONS (8)
  - Eye pain [None]
  - Bone pain [None]
  - Head discomfort [None]
  - Headache [None]
  - Photosensitivity reaction [None]
  - Amnesia [None]
  - Dyspnoea [None]
  - Arthritis [None]

NARRATIVE: CASE EVENT DATE: 20190912
